FAERS Safety Report 8008856-0 (Version None)
Quarter: 2011Q4

REPORT INFORMATION
  Report Type: 
  Country: None (occurrence: None)
  Receive Date: 20111227
  Receipt Date: 20111220
  Transmission Date: 20120403
  Serious: Yes (Other)
  Sender: FDA-Public Use
  Company Number: PHHY2011JP96257

PATIENT
  Age: 66 Year
  Sex: Male

DRUGS (4)
  1. CARBOPLATIN [Suspect]
     Indication: LUNG ADENOCARCINOMA
     Route: 042
  2. IRRADIATION [Suspect]
     Indication: LUNG ADENOCARCINOMA
  3. PACLITAXEL [Suspect]
     Indication: LUNG ADENOCARCINOMA
  4. ANTIVIRALS FOR TREATMENT OF HIV INFECTIONS, C [Concomitant]

REACTIONS (1)
  - RADIATION PNEUMONITIS [None]
